FAERS Safety Report 24910156 (Version 2)
Quarter: 2025Q3

REPORT INFORMATION
  Report Type: Spontaneous
  Country: AU (occurrence: AU)
  Receive Date: 20250131
  Receipt Date: 20250809
  Transmission Date: 20251020
  Serious: Yes (Hospitalization, Other)
  Sender: ALEXION PHARMACEUTICALS
  Company Number: AU-SA-2025SA024264

PATIENT
  Age: 15 Day
  Sex: Male
  Weight: 4.5 kg

DRUGS (1)
  1. NIRSEVIMAB [Suspect]
     Active Substance: NIRSEVIMAB
     Indication: Meningitis
     Dates: start: 20240411, end: 20240411

REACTIONS (8)
  - Meningitis [Unknown]
  - Pyrexia [Recovered/Resolved]
  - Erythema [Unknown]
  - Hyperferritinaemia [Recovering/Resolving]
  - Hypophagia [Unknown]
  - Pallor [Unknown]
  - Parechovirus infection [Unknown]
  - Rhinovirus infection [Unknown]

NARRATIVE: CASE EVENT DATE: 20240413
